FAERS Safety Report 12159199 (Version 1)
Quarter: 2016Q1

REPORT INFORMATION
  Report Type: Report from Study
  Country: CA (occurrence: CA)
  Receive Date: 20160308
  Receipt Date: 20160308
  Transmission Date: 20160526
  Serious: Yes (Death, Other)
  Sender: FDA-Public Use
  Company Number: PHHY2012CA004210

PATIENT
  Age: 72 Year
  Sex: Female

DRUGS (3)
  1. ZOMETA [Suspect]
     Active Substance: ZOLEDRONIC ACID
     Indication: BREAST CANCER
     Dosage: 4 MG EVERY 6 MONTHS
     Route: 042
     Dates: start: 20120110
  2. POTASIUM M [Concomitant]
     Indication: BLOOD POTASSIUM ABNORMAL
     Dosage: UNK UKN, UNK
  3. CODEINE [Concomitant]
     Active Substance: CODEINE
     Dosage: UNK UKN, UNK

REACTIONS (5)
  - Blood potassium decreased [Unknown]
  - Nasopharyngitis [Unknown]
  - Death [Fatal]
  - Pain [Unknown]
  - Renal failure [Unknown]

NARRATIVE: CASE EVENT DATE: 20120113
